FAERS Safety Report 6049508-6 (Version None)
Quarter: 2009Q1

REPORT INFORMATION
  Report Type: 
  Country: None (occurrence: None)
  Receive Date: 20090121
  Receipt Date: 20090109
  Transmission Date: 20090719
  Serious: Yes (Disabling)
  Sender: FDA-Public Use
  Company Number: TCI2009A00090

PATIENT

DRUGS (2)
  1. ACTOS [Suspect]
     Indication: TYPE 2 DIABETES MELLITUS
     Route: 048
  2. ANITHYPERTENSIVES [Concomitant]

REACTIONS (1)
  - TYPE 1 DIABETES MELLITUS [None]
